FAERS Safety Report 9351015 (Version 1)
Quarter: 2013Q2

REPORT INFORMATION
  Report Type: Spontaneous
  Country: TW (occurrence: TW)
  Receive Date: 20130617
  Receipt Date: 20130617
  Transmission Date: 20140414
  Serious: Yes (Other)
  Sender: FDA-Public Use
  Company Number: TW-BRISTOL-MYERS SQUIBB COMPANY-19013788

PATIENT
  Age: 74 Year
  Sex: Male

DRUGS (3)
  1. MITOMYCIN-C [Suspect]
     Indication: BLADDER NEOPLASM
     Dosage: LAST DOSE:26MAR2013
     Route: 043
     Dates: start: 20130219
  2. BETHANECHOL CHLORIDE [Concomitant]
     Dosage: TABS
     Dates: start: 20130213
  3. TAMSULOSIN HCL [Concomitant]
     Dosage: TABS
     Dates: start: 20130213

REACTIONS (4)
  - Erythema [Recovering/Resolving]
  - Pruritus [Recovering/Resolving]
  - Skin exfoliation [Recovering/Resolving]
  - Hypersensitivity [Recovering/Resolving]
